FAERS Safety Report 5141578-2 (Version None)
Quarter: 2006Q4

REPORT INFORMATION
  Report Type: 
  Country: None (occurrence: None)
  Receive Date: 20061026
  Receipt Date: 20061017
  Transmission Date: 20070319
  Serious: Yes (Hospitalization)
  Sender: FDA-Public Use
  Company Number: 2006-05430

PATIENT
  Age: 39 Year
  Sex: Female
  Weight: 132.4 kg

DRUGS (2)
  1. LEVORA 0.15/30-28(WATSON LABORATORIES)(LEVONORGESTREL 0.15 MG,ETHINYL [Suspect]
     Indication: CONTRACEPTION
     Dosage: 1 TABLET, DAILY, ORAL
     Route: 048
     Dates: start: 20060401, end: 20060928
  2. ALEVE [Concomitant]

REACTIONS (2)
  - BRAIN NEOPLASM [None]
  - PULMONARY EMBOLISM [None]
